FAERS Safety Report 23064933 (Version 3)
Quarter: 2023Q4

REPORT INFORMATION
  Report Type: Spontaneous
  Country: US (occurrence: US)
  Receive Date: 20231013
  Receipt Date: 20231024
  Transmission Date: 20240109
  Serious: No
  Sender: FDA-Public Use
  Company Number: US-PFIZER INC-202300314940

PATIENT
  Age: 79 Year

DRUGS (10)
  1. LEVOFLOXACIN [Suspect]
     Active Substance: LEVOFLOXACIN
     Indication: Urinary tract infection
     Dosage: ONCE A DAY FOR 2 DAYS
  2. ELIQUIS [Suspect]
     Active Substance: APIXABAN
     Dosage: UNK
  3. AMIODARONE HYDROCHLORIDE [Suspect]
     Active Substance: AMIODARONE HYDROCHLORIDE
     Dosage: UNK
  4. MAGNESIUM [Suspect]
     Active Substance: MAGNESIUM
     Dosage: UNK
  5. IRON [Suspect]
     Active Substance: IRON
     Dosage: 150 MG
  6. ZINC [Suspect]
     Active Substance: PYRITHIONE ZINC\ZINC\ZINC CHLORIDE
     Dosage: UNK
  7. VALSARTAN [Suspect]
     Active Substance: VALSARTAN
     Dosage: UNK
  8. CARVEDILOL [Suspect]
     Active Substance: CARVEDILOL
     Dosage: UNK
  9. FAMOTIDINE [Suspect]
     Active Substance: FAMOTIDINE
     Dosage: UNK
  10. TROSPIUM [Suspect]
     Active Substance: TROSPIUM
     Dosage: UNK

REACTIONS (5)
  - Chest pain [Unknown]
  - Pain in extremity [Unknown]
  - Oropharyngeal pain [Unknown]
  - Confusional state [Unknown]
  - Fear [Unknown]
